FAERS Safety Report 10025906 (Version 1)
Quarter: 2014Q1

REPORT INFORMATION
  Report Type: Spontaneous
  Country: CL (occurrence: CL)
  Receive Date: 20140320
  Receipt Date: 20140320
  Transmission Date: 20141002
  Serious: Yes (Other)
  Sender: FDA-Public Use
  Company Number: CL-PFIZER INC-2014077428

PATIENT
  Sex: Female

DRUGS (2)
  1. XALATAN [Suspect]
     Dosage: 1 GTT, 2X/DAY (EVERY 12 HOURS)
     Route: 047
     Dates: start: 2004, end: 2007
  2. VARTALAN [Concomitant]
     Dosage: UNK

REACTIONS (3)
  - Myocardial infarction [Unknown]
  - Drug ineffective [Unknown]
  - Incorrect dose administered [Unknown]
